FAERS Safety Report 14023638 (Version 1)
Quarter: 2017Q3

REPORT INFORMATION
  Report Type: Spontaneous
  Country: US (occurrence: US)
  Receive Date: 20170928
  Receipt Date: 20170928
  Transmission Date: 20171128
  Serious: No
  Sender: FDA-Public Use
  Company Number: US-SA-2016SA223230

PATIENT
  Age: 34 Year
  Sex: Female

DRUGS (4)
  1. AUBAGIO [Suspect]
     Active Substance: TERIFLUNOMIDE
     Indication: MULTIPLE SCLEROSIS
     Route: 048
     Dates: start: 201610
  2. TRAMADOL. [Concomitant]
     Active Substance: TRAMADOL
  3. ZOLOFT [Concomitant]
     Active Substance: SERTRALINE HYDROCHLORIDE
  4. AUBAGIO [Suspect]
     Active Substance: TERIFLUNOMIDE
     Indication: MULTIPLE SCLEROSIS
     Route: 048
     Dates: start: 201611

REACTIONS (4)
  - Chapped lips [Not Recovered/Not Resolved]
  - Dry eye [Not Recovered/Not Resolved]
  - Decreased interest [Unknown]
  - Depression [Unknown]

NARRATIVE: CASE EVENT DATE: 201612
